FAERS Safety Report 7116251-1 (Version None)
Quarter: 2010Q4

REPORT INFORMATION
  Report Type: 
  Country: None (occurrence: None)
  Receive Date: 20101122
  Receipt Date: 20100927
  Transmission Date: 20110411
  Serious: No
  Sender: FDA-Public Use
  Company Number: US-BAYER-201022273BCC

PATIENT
  Age: 87 Year
  Sex: Female
  Weight: 66 kg

DRUGS (6)
  1. ALEVE (CAPLET) [Suspect]
     Indication: PRODUCT USED FOR UNKNOWN INDICATION
     Dosage: TOTAL DAILY DOSE: 440 MG  UNIT DOSE: 220 MG
     Route: 048
     Dates: start: 20100801
  2. ESTRADIOL [Concomitant]
     Indication: BONE DISORDER
  3. FISH OIL [Concomitant]
  4. VITAMIN D [Concomitant]
  5. VITAMIN E [Concomitant]
  6. GLUCOSAMINE CHONDROITIN [Concomitant]
     Indication: BONE DISORDER

REACTIONS (2)
  - PAIN IN EXTREMITY [None]
  - WEIGHT INCREASED [None]
